FAERS Safety Report 5449727-3 (Version None)
Quarter: 2007Q3

REPORT INFORMATION
  Report Type: 
  Country: None (occurrence: None)
  Receive Date: 20070910
  Receipt Date: 20070910
  Transmission Date: 20080115
  Serious: Yes (Other)
  Sender: FDA-Public Use
  Company Number: None

PATIENT
  Age: 48 Year
  Sex: Female
  Weight: 68.0396 kg

DRUGS (1)
  1. TARGET LUBRICATING EYE DROPS [Suspect]

REACTIONS (3)
  - APPLICATION SITE REACTION [None]
  - CONJUNCTIVITIS [None]
  - DRUG TOXICITY [None]
